FAERS Safety Report 4766982-3 (Version None)
Quarter: 2005Q3

REPORT INFORMATION
  Report Type: 
  Country: None (occurrence: None)
  Receive Date: 20050908
  Receipt Date: 20050905
  Transmission Date: 20060218
  Serious: Yes (Death)
  Sender: FDA-Public Use
  Company Number: 200510510BFR

PATIENT
  Age: 55 Year
  Sex: Male
  Weight: 80 kg

DRUGS (7)
  1. NIFEDIPINE [Suspect]
     Indication: HYPERTENSION
     Dosage: 30 MG, TOTAL DAILY, ORAL
     Route: 048
     Dates: end: 20050627
  2. TENORMIN [Suspect]
     Indication: HYPERTENSION
     Dosage: 150 MG, QD, ORAL
     Route: 048
     Dates: end: 20050627
  3. EZETROL (EZETIMIBE) [Suspect]
     Indication: HYPERCHOLESTEROLAEMIA
     Dosage: 10 MG, QD, ORAL
     Route: 048
     Dates: start: 20050607, end: 20050627
  4. CRESTOR [Suspect]
     Indication: HYPERCHOLESTEROLAEMIA
     Dosage: 10 MG, QD, ORAL
     Route: 048
     Dates: start: 20050602, end: 20050627
  5. COVERSYL (PERINODPRIL) [Suspect]
     Indication: ESSENTIAL HYPERTENSION
     Dosage: 2 MG, QD, ORAL
     Route: 048
     Dates: end: 20050627
  6. PLAVIX [Suspect]
     Dosage: 75 MG, QD, ORAL
     Route: 048
     Dates: end: 20050627
  7. PRAVASTATIN [Concomitant]

REACTIONS (4)
  - CARDIAC ARREST [None]
  - CARDIAC FIBRILLATION [None]
  - MYALGIA [None]
  - TRACHEITIS [None]
